FAERS Safety Report 15272708 (Version 1)
Quarter: 2018Q3

REPORT INFORMATION
  Report Type: Report from Study
  Country: US (occurrence: US)
  Receive Date: 20180813
  Receipt Date: 20180813
  Transmission Date: 20181010
  Serious: Yes (Other)
  Sender: FDA-Public Use
  Company Number: US-EGALET US INC-US-2018EGA000540

PATIENT

DRUGS (1)
  1. SPRIX [Suspect]
     Active Substance: KETOROLAC TROMETHAMINE
     Indication: PRODUCT USED FOR UNKNOWN INDICATION
     Dosage: ONE SPRAY IN EACH NOSTRIL Q6?8H
     Route: 045
     Dates: start: 201805, end: 201807

REACTIONS (2)
  - Fluid retention [Recovered/Resolved]
  - Renal pain [Recovered/Resolved]

NARRATIVE: CASE EVENT DATE: 201807
